FAERS Safety Report 14929552 (Version 1)
Quarter: 2018Q2

REPORT INFORMATION
  Report Type: Spontaneous
  Country: DK (occurrence: DK)
  Receive Date: 20180523
  Receipt Date: 20180523
  Transmission Date: 20180711
  Serious: Yes (Life-Threatening, Hospitalization, Other)
  Sender: FDA-Public Use
  Company Number: DK-MYLANLABS-2018M1033044

PATIENT
  Age: 76 Year
  Sex: Female

DRUGS (9)
  1. AMIODARONE [Concomitant]
     Active Substance: AMIODARONE
     Indication: ATRIAL FIBRILLATION
     Dosage: UNK
  2. VALPROIC ACID. [Suspect]
     Active Substance: VALPROIC ACID
     Indication: PARTIAL SEIZURES
     Dosage: 300 MG, QD,TITRATED UPTO 1200 MG/DAY
     Route: 065
     Dates: end: 20130131
  3. METOPROLOL. [Concomitant]
     Active Substance: METOPROLOL
     Indication: HYPERTENSION
     Dosage: UNK
  4. CITALOPRAM [Concomitant]
     Active Substance: CITALOPRAM HYDROBROMIDE
     Indication: DEPRESSION
     Dosage: UNK
  5. BENDROFLUMETHIAZIDE [Concomitant]
     Active Substance: BENDROFLUMETHIAZIDE
     Indication: HYPERTENSION
     Dosage: UNK
  6. VALPROIC ACID. [Suspect]
     Active Substance: VALPROIC ACID
     Dosage: 1200 MG, QD,TITRATED UPTO 1200 MG/DAY
     Route: 065
  7. WARFARIN [Concomitant]
     Active Substance: WARFARIN
     Indication: ATRIAL FIBRILLATION
     Dosage: UNK
  8. VALPROIC ACID. [Suspect]
     Active Substance: VALPROIC ACID
     Dosage: UNK,DISCONTINUED AFTER GRADUALLY TITRATED DOWN TO 300 MG/DAY
     Route: 065
  9. LEVOTHYROXINE. [Concomitant]
     Active Substance: LEVOTHYROXINE
     Indication: HYPOTHYROIDISM
     Dosage: UNK

REACTIONS (13)
  - Psychomotor retardation [Recovered/Resolved]
  - Gait disturbance [Recovered/Resolved]
  - Muscle rigidity [Recovered/Resolved]
  - Cerebral atrophy [Recovered/Resolved]
  - Extrapyramidal disorder [Recovered/Resolved]
  - Bradykinesia [Recovered/Resolved]
  - Encephalopathy [Recovered/Resolved]
  - Speech disorder [Recovered/Resolved]
  - Altered state of consciousness [Recovered/Resolved]
  - Aphasia [Recovered/Resolved]
  - Resting tremor [Recovered/Resolved]
  - Amnesia [Recovered/Resolved]
  - Cognitive disorder [Recovered/Resolved]

NARRATIVE: CASE EVENT DATE: 201201
